FAERS Safety Report 17949007 (Version 1)
Quarter: 2020Q2

REPORT INFORMATION
  Report Type: Spontaneous
  Country: US (occurrence: US)
  Receive Date: 20200625
  Receipt Date: 20200625
  Transmission Date: 20200714
  Serious: No
  Sender: FDA-Public Use
  Company Number: US-ROCHE-2457461

PATIENT
  Age: 78 Year
  Sex: Male
  Weight: 136.2 kg

DRUGS (2)
  1. KLONOPIN [Suspect]
     Active Substance: CLONAZEPAM
     Indication: RESTLESS LEGS SYNDROME
     Dosage: AT NIGHT ;ONGOING: YES
     Route: 048
  2. KLONOPIN [Suspect]
     Active Substance: CLONAZEPAM
     Indication: MOVEMENT DISORDER
     Dosage: HAS 2 BOTTLES FOR 90 DAYS. TAKES 1.5 PILLS A DAY ONGOING UNKNOWN
     Route: 048

REACTIONS (5)
  - Intentional product use issue [Unknown]
  - Drug ineffective [Unknown]
  - Product quality issue [Unknown]
  - Insomnia [Not Recovered/Not Resolved]
  - Off label use [Unknown]

NARRATIVE: CASE EVENT DATE: 20191001
